FAERS Safety Report 7645521-3 (Version None)
Quarter: 2011Q3

REPORT INFORMATION
  Report Type: 
  Country: None (occurrence: None)
  Receive Date: 20110729
  Receipt Date: 20110722
  Transmission Date: 20111222
  Serious: Yes (Death)
  Sender: FDA-Public Use
  Company Number: US-CELGENEUS-163-21880-11071394

PATIENT
  Sex: Female

DRUGS (13)
  1. REVLIMID [Suspect]
     Indication: MANTLE CELL LYMPHOMA
     Dosage: 5 MILLIGRAM
     Route: 048
     Dates: start: 20101027
  2. NORTRIPTYLINE HCL [Concomitant]
     Route: 065
  3. ZEBETA [Concomitant]
     Route: 065
  4. LITHIUM CARBONATE [Concomitant]
     Route: 065
  5. ARICEPT [Concomitant]
     Route: 065
  6. MUCINEX [Concomitant]
     Route: 065
  7. FLONASE [Concomitant]
     Route: 065
  8. LASIX [Concomitant]
     Route: 065
  9. REVLIMID [Suspect]
     Dosage: 2.5 MILLIGRAM
     Route: 048
     Dates: start: 20110513
  10. XANAX [Concomitant]
     Route: 065
  11. XOPENEX [Concomitant]
     Route: 065
  12. CENTRUM [Concomitant]
     Route: 065
  13. SINGULAIR [Concomitant]
     Route: 065

REACTIONS (1)
  - MANTLE CELL LYMPHOMA [None]
